FAERS Safety Report 7273877-2 (Version None)
Quarter: 2011Q1

REPORT INFORMATION
  Report Type: 
  Country: None (occurrence: None)
  Receive Date: 20110203
  Receipt Date: 20110121
  Transmission Date: 20110831
  Serious: Yes (Hospitalization)
  Sender: FDA-Public Use
  Company Number: US-ELI_LILLY_AND_COMPANY-US201101006096

PATIENT
  Sex: Female

DRUGS (16)
  1. COZAAR [Concomitant]
  2. PRAVASTATIN [Concomitant]
  3. GABAPENTINA [Concomitant]
  4. ACTOS [Concomitant]
  5. SERTRALINE HYDROCHLORIDE [Concomitant]
  6. GLIPIZIDE [Concomitant]
  7. LUMIGAN [Concomitant]
  8. FORTEO [Suspect]
     Dosage: UNK, UNK
     Dates: start: 20100101
  9. LEVAQUIN [Concomitant]
  10. ENALAPRIL MALEATE [Concomitant]
  11. DOXYCYCLINE [Concomitant]
  12. ALPHAGAN [Concomitant]
  13. BIAXIN [Concomitant]
  14. METFORMIN [Concomitant]
  15. ADVAIR [Concomitant]
  16. VENTOLIN                                /SCH/ [Concomitant]

REACTIONS (2)
  - GOUT [None]
  - PANCREATITIS [None]
